FAERS Safety Report 7756186-4 (Version None)
Quarter: 2011Q3

REPORT INFORMATION
  Report Type: 
  Country: None (occurrence: None)
  Receive Date: 20110914
  Receipt Date: 20110906
  Transmission Date: 20111222
  Serious: Yes (Death, Hospitalization, Other)
  Sender: FDA-Public Use
  Company Number: 2011SP002350

PATIENT
  Age: 76 Year
  Sex: Male

DRUGS (12)
  1. ATROVENT [Concomitant]
  2. DUONEB [Concomitant]
  3. LIPITOR [Concomitant]
  4. ANTIBIOTICS [Suspect]
     Indication: ACUTE RESPIRATORY DISTRESS SYNDROME
     Dates: start: 20110701
  5. CORTICOSTEROIDS [Suspect]
  6. ATROVENT [Concomitant]
  7. ALBUTEROL [Concomitant]
  8. BROVANA [Suspect]
     Indication: PULMONARY FIBROSIS
     Dosage: 15 MG;BID;
     Dates: start: 20110701, end: 20110701
  9. BROVANA [Suspect]
     Indication: ACUTE RESPIRATORY DISTRESS SYNDROME
     Dosage: 15 MG;BID;
     Dates: start: 20110701, end: 20110701
  10. PULMICORT [Concomitant]
  11. OXYGEN [Concomitant]
  12. PENICILLIN [Concomitant]

REACTIONS (4)
  - TOXIC EPIDERMAL NECROLYSIS [None]
  - INFECTION [None]
  - STEVENS-JOHNSON SYNDROME [None]
  - CHRONIC OBSTRUCTIVE PULMONARY DISEASE [None]
